FAERS Safety Report 10045190 (Version 1)
Quarter: 2014Q1

REPORT INFORMATION
  Report Type: Spontaneous
  Country: US (occurrence: None)
  Receive Date: 20140306
  Receipt Date: 20140306
  Transmission Date: 20141002
  Serious: Yes (Hospitalization)
  Sender: FDA-Public Use
  Company Number: 163-21880-13053084

PATIENT
  Age: 80 Year
  Sex: Female

DRUGS (9)
  1. REVLIMID (LENALIDOMIDE) (CAPSULES) [Suspect]
     Indication: PLASMA CELL MYELOMA
     Dosage: 5 MG, 28 IN 28 D, PO
     Route: 048
     Dates: start: 20121214
  2. BABY ASPIRIN (ACETYLSALICYLIC ACID) [Concomitant]
  3. DEXAMETHASONE (DEXAMETHASONE) [Concomitant]
  4. FENTANYL (FENTANYL) [Concomitant]
  5. L-THYROXINE SODIUM (LEVOTHYROXINE SODIUM) [Concomitant]
  6. MEGESTROL ACETATE (MEGESTROL ACETATE) [Concomitant]
  7. OMEPRAZOLE (OMEPPRAZOLE) [Concomitant]
  8. OXYCODONE ACEETAMINOPHEN (OXYCOCET) [Concomitant]
  9. ZOLPIDEM TARTRATE (ZOLPIDEM TARTRATE) [Concomitant]

REACTIONS (2)
  - Plasma cell myeloma [None]
  - Plasmacytoma [None]
